FAERS Safety Report 4268947-7 (Version None)
Quarter: 2004Q1

REPORT INFORMATION
  Report Type: 
  Country: None (occurrence: None)
  Receive Date: 20040109
  Receipt Date: 20040106
  Transmission Date: 20041129
  Serious: Yes (Life-Threatening, Hospitalization, Disabling)
  Sender: FDA-Public Use
  Company Number: 200410006BNE

PATIENT
  Age: 62 Year
  Sex: Male

DRUGS (11)
  1. ASPIRIN [Suspect]
     Indication: ANGIOPLASTY
     Dosage: 75 MG, TOTAL DAILY, ORAL
     Route: 048
     Dates: end: 20031218
  2. ASPIRIN [Suspect]
     Indication: MYOCARDIAL INFARCTION
     Dosage: 75 MG, TOTAL DAILY, ORAL
     Route: 048
     Dates: end: 20031218
  3. WARFARIN SODIUM [Suspect]
     Indication: ANGIOPLASTY
     Dosage: ORAL
     Route: 048
     Dates: start: 20031210, end: 20031218
  4. WARFARIN SODIUM [Suspect]
     Indication: MYOCARDIAL INFARCTION
     Dosage: ORAL
     Route: 048
     Dates: start: 20031210, end: 20031218
  5. CLOPIDOGREL [Suspect]
     Indication: ANGIOPLASTY
     Dosage: 75 MG, TOTAL DAILY, ORAL
     Route: 048
     Dates: start: 20031203, end: 20031218
  6. CLOPIDOGREL [Suspect]
     Indication: MYOCARDIAL INFARCTION
     Dosage: 75 MG, TOTAL DAILY, ORAL
     Route: 048
     Dates: start: 20031203, end: 20031218
  7. ATENOLOL [Concomitant]
  8. RAMIPRIL [Concomitant]
  9. PRAVASTATIN [Concomitant]
  10. OMEPRAZOLE [Concomitant]
  11. FUROSEMIDE [Concomitant]

REACTIONS (1)
  - SUBARACHNOID HAEMORRHAGE [None]
